FAERS Safety Report 25509754 (Version 1)
Quarter: 2025Q3

REPORT INFORMATION
  Report Type: Spontaneous
  Country: EU (occurrence: EU)
  Receive Date: 20250703
  Receipt Date: 20250703
  Transmission Date: 20251021
  Serious: Yes (Other)
  Sender: DR REDDYS
  Company Number: None

PATIENT
  Age: 66 Year
  Sex: Female
  Weight: 94 kg

DRUGS (3)
  1. DOXORUBICIN [Suspect]
     Active Substance: DOXORUBICIN
     Indication: Myxofibrosarcoma
     Route: 042
     Dates: start: 20250424, end: 20250424
  2. MESNA [Suspect]
     Active Substance: MESNA
     Indication: Cystitis haemorrhagic
     Dosage: DE J1 DE J3 DE CHAQUE CYCLE (FROM D1 TO D3 OF EACH CYCLE)
     Route: 042
     Dates: start: 20250424, end: 20250425
  3. IFOSFAMIDE [Suspect]
     Active Substance: IFOSFAMIDE
     Indication: Myxofibrosarcoma
     Dosage: DE J1 A J3 DE CHAQUE CYCLE (FROM D1 TO D3 OF EACH CYCLE)
     Route: 042
     Dates: start: 20250424, end: 20250425

REACTIONS (1)
  - Toxic encephalopathy [Recovered/Resolved]

NARRATIVE: CASE EVENT DATE: 20250425
